FAERS Safety Report 12834383 (Version 1)
Quarter: 2016Q4

REPORT INFORMATION
  Report Type: Spontaneous
  Country: US (occurrence: US)
  Receive Date: 20161010
  Receipt Date: 20161010
  Transmission Date: 20170207
  Serious: No
  Sender: FDA-Public Use
  Company Number: ALCN2016US006896

PATIENT
  Sex: Male

DRUGS (1)
  1. BION TEARS [Suspect]
     Active Substance: DEXTRAN 70\HYPROMELLOSE 2910 (4000 MPA.S)
     Indication: DRY EYE
     Dosage: 1 GTT, TID
     Route: 047
     Dates: start: 201609, end: 201609

REACTIONS (1)
  - Eye discharge [Recovered/Resolved]

NARRATIVE: CASE EVENT DATE: 201609
